FAERS Safety Report 7393162-8 (Version None)
Quarter: 2011Q2

REPORT INFORMATION
  Report Type: 
  Country: None (occurrence: None)
  Receive Date: 20110404
  Receipt Date: 20110321
  Transmission Date: 20111010
  Serious: Yes (Other)
  Sender: FDA-Public Use
  Company Number: ES-MYLANLABS-2011S1005997

PATIENT
  Age: 33 Year
  Sex: Female

DRUGS (5)
  1. TRETINOIN [Suspect]
     Indication: ACUTE PROMYELOCYTIC LEUKAEMIA
     Dosage: 45 MG/M2/DAY IN TWO SPLIT DOSES
     Route: 048
  2. IDARUBICIN HCL [Concomitant]
     Indication: ACUTE PROMYELOCYTIC LEUKAEMIA
     Dosage: 12 MG/M2 ON DAYS +2, +4, +6 AND +8
     Route: 041
  3. FLUCONAZOLE [Interacting]
     Indication: ANTIFUNGAL PROPHYLAXIS
     Route: 065
  4. POSACONAZOLE [Interacting]
     Indication: ANTIFUNGAL PROPHYLAXIS
     Route: 065
  5. DEXAMETHASONE [Concomitant]
     Indication: PROPHYLAXIS
     Dosage: 2.5 MG/M2/12H FROM DAYS +1 TO +15
     Route: 040

REACTIONS (6)
  - GASTROINTESTINAL TOXICITY [None]
  - ABDOMINAL DISTENSION [None]
  - DIARRHOEA [None]
  - DRUG INTERACTION [None]
  - HEPATOTOXICITY [None]
  - METABOLIC ACIDOSIS [None]
